FAERS Safety Report 5045131-0 (Version None)
Quarter: 2006Q3

REPORT INFORMATION
  Report Type: 
  Country: None (occurrence: None)
  Receive Date: 20060705
  Receipt Date: 20060621
  Transmission Date: 20061208
  Serious: Yes (Death, Hospitalization)
  Sender: FDA-Public Use
  Company Number: 2006BI000254

PATIENT
  Age: 26 Year
  Sex: Female
  Weight: 80.2867 kg

DRUGS (1)
  1. NATALIZUMAB [Suspect]
     Indication: MULTIPLE SCLEROSIS
     Dosage: IV
     Route: 042
     Dates: start: 20050101, end: 20050201

REACTIONS (24)
  - ACINETOBACTER INFECTION [None]
  - APNOEA [None]
  - BRONCHOPNEUMONIA [None]
  - CEREBRAL ISCHAEMIA [None]
  - COMA [None]
  - DISEASE PROGRESSION [None]
  - FALSE POSITIVE LABORATORY RESULT [None]
  - FOREIGN BODY TRAUMA [None]
  - GASTROINTESTINAL INFECTION [None]
  - HYPOXIA [None]
  - INCREASED BRONCHIAL SECRETION [None]
  - MENTAL STATUS CHANGES [None]
  - MULTIPLE SCLEROSIS RELAPSE [None]
  - PLEOCYTOSIS [None]
  - PNEUMONIA ASPIRATION [None]
  - PULMONARY CONGESTION [None]
  - PULSE ABSENT [None]
  - PYREXIA [None]
  - RESPIRATORY DISTRESS [None]
  - SEPTIC SHOCK [None]
  - SPUTUM CULTURE POSITIVE [None]
  - STAPHYLOCOCCAL INFECTION [None]
  - TACHYCARDIA [None]
  - VEIN DISORDER [None]
